FAERS Safety Report 9814763 (Version 1)
Quarter: 2014Q1

REPORT INFORMATION
  Report Type: Spontaneous
  Country: US (occurrence: US)
  Receive Date: 20140113
  Receipt Date: 20140113
  Transmission Date: 20141002
  Serious: Yes (Hospitalization, Other)
  Sender: FDA-Public Use
  Company Number: US-SANOFI-AVENTIS-2013SA083473

PATIENT
  Sex: Male

DRUGS (1)
  1. TAXOTERE [Suspect]
     Indication: PROSTATE CANCER
     Route: 065

REACTIONS (4)
  - Ulcer haemorrhage [Unknown]
  - Volvulus [Unknown]
  - Malaise [Unknown]
  - Prostatic specific antigen increased [Unknown]
